FAERS Safety Report 15013005 (Version 2)
Quarter: 2018Q3

REPORT INFORMATION
  Report Type: Spontaneous
  Country: US (occurrence: US)
  Receive Date: 20180614
  Receipt Date: 20180709
  Transmission Date: 20181010
  Serious: No
  Sender: FDA-Public Use
  Company Number: US-BEH-2018091639

PATIENT
  Age: 55 Year
  Sex: Female
  Weight: 61.22 kg

DRUGS (13)
  1. ALBUTEROL                          /00139501/ [Concomitant]
     Active Substance: ALBUTEROL
  2. IBUPROFEN. [Concomitant]
     Active Substance: IBUPROFEN
  3. CLONAZEPAM. [Concomitant]
     Active Substance: CLONAZEPAM
  4. GABAPENTIN. [Concomitant]
     Active Substance: GABAPENTIN
  5. FUROSEMIDE. [Concomitant]
     Active Substance: FUROSEMIDE
  6. ESTRADIOL. [Concomitant]
     Active Substance: ESTRADIOL
  7. PROAIR HFA [Concomitant]
     Active Substance: ALBUTEROL SULFATE
  8. OMEPRAZOLE. [Concomitant]
     Active Substance: OMEPRAZOLE
  9. MONTELUKAST [Concomitant]
     Active Substance: MONTELUKAST SODIUM
  10. IPRATROPIUM BROMIDE. [Concomitant]
     Active Substance: IPRATROPIUM BROMIDE
  11. ESZOPICLONE. [Concomitant]
     Active Substance: ESZOPICLONE
  12. TYLENOL PM EXTRA STRENGTH [Concomitant]
     Active Substance: ACETAMINOPHEN\DIPHENHYDRAMINE HYDROCHLORIDE
  13. HIZENTRA [Suspect]
     Active Substance: HUMAN IMMUNOGLOBULIN G
     Indication: IMMUNODEFICIENCY COMMON VARIABLE
     Dosage: 8 G, QW
     Route: 058
     Dates: start: 20180301

REACTIONS (2)
  - Asthenia [Unknown]
  - Peripheral swelling [Unknown]

NARRATIVE: CASE EVENT DATE: 20180608
